FAERS Safety Report 8083687-4 (Version None)
Quarter: 2012Q1

REPORT INFORMATION
  Report Type: 
  Country: None (occurrence: None)
  Receive Date: 20120127
  Receipt Date: 20110112
  Transmission Date: 20120608
  Serious: No
  Sender: FDA-Public Use
  Company Number: US-ABBOTT-11P-163-0697087-00

PATIENT
  Sex: Female
  Weight: 95.34 kg

DRUGS (4)
  1. UNKNOWN MEDICATION [Concomitant]
     Indication: PSORIASIS
     Route: 061
  2. HUMIRA [Suspect]
     Indication: PSORIATIC ARTHROPATHY
     Dates: start: 20101215
  3. DIOVAN [Concomitant]
     Indication: HYPERTENSION
  4. NASONEX [Concomitant]
     Indication: ALLERGIC SINUSITIS

REACTIONS (1)
  - HEADACHE [None]
